FAERS Safety Report 10439874 (Version 2)
Quarter: 2014Q4

REPORT INFORMATION
  Report Type: Spontaneous
  Country: US (occurrence: US)
  Receive Date: 20140908
  Receipt Date: 20141205
  Transmission Date: 20150528
  Serious: No
  Sender: FDA-Public Use
  Company Number: US-BRISTOL-MYERS SQUIBB COMPANY-20670147

PATIENT
  Age: 73 Year
  Sex: Female

DRUGS (7)
  1. TRAZODONE HYDROCHLORIDE. [Concomitant]
     Active Substance: TRAZODONE HYDROCHLORIDE
  2. ABILIFY [Suspect]
     Active Substance: ARIPIPRAZOLE
     Indication: DEPRESSION
     Route: 048
     Dates: start: 20111011, end: 20130913
  3. GLIMEPIRIDE. [Concomitant]
     Active Substance: GLIMEPIRIDE
  4. LEVOTHYROXINE [Concomitant]
     Active Substance: LEVOTHYROXINE
  5. VENLAFAXINE HCL [Concomitant]
     Active Substance: VENLAFAXINE HYDROCHLORIDE
  6. LOVASTATIN. [Concomitant]
     Active Substance: LOVASTATIN
  7. CLONAZEPAM. [Concomitant]
     Active Substance: CLONAZEPAM

REACTIONS (9)
  - Drooling [Unknown]
  - Decreased appetite [Unknown]
  - Blood glucose increased [Unknown]
  - Gait disturbance [Unknown]
  - Arthritis [Unknown]
  - Tongue disorder [Not Recovered/Not Resolved]
  - Dyskinesia [Unknown]
  - Weight decreased [Unknown]
  - Choking [Unknown]
